FAERS Safety Report 14563245 (Version 1)
Quarter: 2018Q1

REPORT INFORMATION
  Report Type: Spontaneous
  Country: US (occurrence: US)
  Receive Date: 20180222
  Receipt Date: 20180222
  Transmission Date: 20180509
  Serious: No
  Sender: FDA-Public Use
  Company Number: None

PATIENT
  Age: 38 Year
  Sex: Female
  Weight: 65.25 kg

DRUGS (2)
  1. CHILDREN CLARITIN ALLERGY [Suspect]
     Active Substance: LORATADINE
     Indication: MULTIPLE ALLERGIES
     Dosage: QUANTITY:2 TEASPOON(S);?
     Route: 048
  2. MOTRIN [Concomitant]
     Active Substance: IBUPROFEN

REACTIONS (6)
  - Lower respiratory tract infection [None]
  - Sneezing [None]
  - Nasal congestion [None]
  - Pyrexia [None]
  - Rhinorrhoea [None]
  - Cough [None]

NARRATIVE: CASE EVENT DATE: 20180220
